FAERS Safety Report 7621662-1 (Version None)
Quarter: 2011Q3

REPORT INFORMATION
  Report Type: 
  Country: None (occurrence: None)
  Receive Date: 20110719
  Receipt Date: 20110713
  Transmission Date: 20111222
  Serious: Yes (Hospitalization)
  Sender: FDA-Public Use
  Company Number: DE-ABBOTT-11P-062-0838823-00

PATIENT
  Sex: Female

DRUGS (2)
  1. HUMIRA [Suspect]
     Indication: CROHN'S DISEASE
     Route: 058
     Dates: start: 20090323
  2. UNKNOWN MEDICATION [Concomitant]
     Indication: MIGRAINE PROPHYLAXIS
     Dosage: .

REACTIONS (2)
  - PYREXIA [None]
  - CHILLS [None]
